FAERS Safety Report 20586012 (Version 1)
Quarter: 2022Q1

REPORT INFORMATION
  Report Type: Other
  Country: US (occurrence: None)
  Receive Date: 20220313
  Receipt Date: 20220313
  Transmission Date: 20220424
  Serious: Yes (Disabling, Other)
  Sender: FDA-Public Use
  Company Number: US-ROCHE-3039073

PATIENT
  Sex: Female
  Weight: 69.716 kg

DRUGS (1)
  1. OCREVUS [Suspect]
     Active Substance: OCRELIZUMAB
     Indication: Relapsing-remitting multiple sclerosis
     Dosage: LAST DOSE OF OCRELIZUMAB: DEC/2020
     Route: 042

REACTIONS (52)
  - Disability [Unknown]
  - Deafness [Unknown]
  - Ophthalmoplegia [Unknown]
  - Neurogenic bladder [Unknown]
  - Multiple sclerosis [Unknown]
  - Balance disorder [Unknown]
  - Vertigo [Unknown]
  - Hypoaesthesia [Unknown]
  - Pain in extremity [Unknown]
  - Dysphagia [Unknown]
  - Choking [Unknown]
  - Nausea [Unknown]
  - Muscular weakness [Unknown]
  - Tremor [Unknown]
  - Decreased appetite [Unknown]
  - Pruritus [Unknown]
  - Diplopia [Unknown]
  - Vision blurred [Unknown]
  - Constipation [Unknown]
  - Diarrhoea [Unknown]
  - Urinary incontinence [Unknown]
  - Micturition urgency [Unknown]
  - Arthralgia [Unknown]
  - Depression [Unknown]
  - Cough [Unknown]
  - Somnolence [Unknown]
  - Gastrooesophageal reflux disease [Unknown]
  - Urticaria [Unknown]
  - Insomnia [Unknown]
  - Pelvic pain [Unknown]
  - Ataxia [Unknown]
  - Balance disorder [Unknown]
  - Fatigue [Unknown]
  - Anal incontinence [Unknown]
  - Memory impairment [Unknown]
  - Mental impairment [Unknown]
  - Hypoaesthesia [Unknown]
  - Feeling hot [Unknown]
  - Hyperhidrosis [Unknown]
  - Neuralgia [Unknown]
  - Hypertonia [Unknown]
  - Coordination abnormal [Unknown]
  - Muscle spasticity [Unknown]
  - White blood cell count increased [Unknown]
  - Red blood cell count decreased [Unknown]
  - Mean cell volume increased [Unknown]
  - Mean cell haemoglobin increased [Unknown]
  - Lymphocyte count decreased [Unknown]
  - Neutrophil count increased [Unknown]
  - Blood alkaline phosphatase decreased [Unknown]
  - Vomiting [Unknown]
  - Fall [Unknown]
